FAERS Safety Report 8196208 (Version 4)
Quarter: 2014Q3

REPORT INFORMATION
  Report Type: Report from Study
  Country: US (occurrence: US)
  Receive Date: 20111024
  Receipt Date: 20140729
  Transmission Date: 20150326
  Serious: Yes (Other)
  Sender: FDA-Public Use
  Company Number: US-SANOFI-AVENTIS-2011SA069245

PATIENT
  Age: 55 Year
  Sex: Male
  Weight: 95.25 kg

DRUGS (30)
  1. NOVOLOG [Concomitant]
     Active Substance: INSULIN ASPART
     Dosage: PER SLIDING SCALE
  2. HYDROXYZINE HYDROCHLORIDE. [Concomitant]
     Active Substance: HYDROXYZINE HYDROCHLORIDE
     Dosage: 1 EVERY 6 HOURS AS NEEDED
  3. GABAPENTIN. [Concomitant]
     Active Substance: GABAPENTIN
  4. CYMBALTA [Concomitant]
     Active Substance: DULOXETINE HYDROCHLORIDE
  5. GENERAL NUTRIENTS [Concomitant]
     Dosage: 1 A DAY
  6. ONDANSETRON HYDROCHLORIDE. [Concomitant]
     Active Substance: ONDANSETRON HYDROCHLORIDE
     Dosage: 6 A DAY
  7. ATENOLOL. [Concomitant]
     Active Substance: ATENOLOL
     Dosage: 1 IN MORNING AND 2 IN EVENING
  8. LANTUS [Suspect]
     Active Substance: INSULIN GLARGINE
     Indication: TYPE 2 DIABETES MELLITUS
     Dosage: DOSE:95 UNIT(S)
     Route: 058
     Dates: start: 2004
  9. DIURETICS [Concomitant]
     Active Substance: UNSPECIFIED INGREDIENT
     Indication: FLUID RETENTION
  10. CLONIDINE HYDROCHLORIDE. [Concomitant]
     Active Substance: CLONIDINE HYDROCHLORIDE
  11. KLOR-CON [Concomitant]
     Active Substance: POTASSIUM CHLORIDE
     Dosage: TAKE 2 TAB
     Route: 048
  12. PROMETHAZINE [Concomitant]
     Active Substance: PROMETHAZINE\PROMETHAZINE HYDROCHLORIDE
     Dosage: 1 EVERY 6 HOURS AS NEEDED
  13. FUROSEMIDE. [Concomitant]
     Active Substance: FUROSEMIDE
  14. CALCIUM [Concomitant]
     Active Substance: CALCIUM
  15. LANTUS [Suspect]
     Active Substance: INSULIN GLARGINE
     Indication: TYPE 2 DIABETES MELLITUS
     Dosage: DOSE:40 UNIT(S)
     Route: 065
  16. FISH OIL [Concomitant]
     Active Substance: FISH OIL
     Dosage: 1 A DAY
  17. ALL OTHER THERAPEUTIC PRODUCTS [Concomitant]
     Active Substance: UNSPECIFIED INGREDIENT
  18. COMBIVENT /JOR/ [Concomitant]
     Dosage: TAKE 2 PUFFS AS NEEDED
  19. CALCITRIOL. [Concomitant]
     Active Substance: CALCITRIOL
  20. ANTIHYPERTENSIVES [Concomitant]
     Active Substance: UNSPECIFIED INGREDIENT
     Indication: HYPERTENSION
  21. GLYBURIDE. [Concomitant]
     Active Substance: GLYBURIDE
     Dosage: TAKE TWO TABLETS TWICE A DAY
  22. ALPRAZOLAM. [Concomitant]
     Active Substance: ALPRAZOLAM
     Dosage: 2 A DAY
  23. NITRO [Concomitant]
     Active Substance: NITROGLYCERIN
  24. ZYRTEC [Concomitant]
     Active Substance: CETIRIZINE HYDROCHLORIDE
  25. HYDRALAZINE [Concomitant]
     Active Substance: HYDRALAZINE HYDROCHLORIDE
  26. OXYCODONE [Concomitant]
     Active Substance: OXYCODONE
     Dosage: 4 PER DAY
  27. PROCHLORPERAZINE. [Concomitant]
     Active Substance: PROCHLORPERAZINE
     Dosage: EVERY 8 HOURS AS NEEDED
  28. SIMVASTATIN. [Concomitant]
     Active Substance: SIMVASTATIN
  29. RENAGEL [Concomitant]
     Active Substance: SEVELAMER HYDROCHLORIDE
     Dosage: WITH MEALS
  30. OXYMORPHONE HYDROCHLORIDE. [Concomitant]
     Active Substance: OXYMORPHONE HYDROCHLORIDE
     Dosage: 2 A DAY AS NEEDED

REACTIONS (1)
  - Renal failure [Not Recovered/Not Resolved]

NARRATIVE: CASE EVENT DATE: 2006
